FAERS Safety Report 14822901 (Version 1)
Quarter: 2018Q2

REPORT INFORMATION
  Report Type: Spontaneous
  Country: BE (occurrence: BE)
  Receive Date: 20180427
  Receipt Date: 20180427
  Transmission Date: 20180711
  Serious: Yes (Death, Life-Threatening, Disabling, Congenital Anomaly, Other)
  Sender: FDA-Public Use
  Company Number: BE-SA-2018SA109223

PATIENT
  Sex: Male
  Weight: .3 kg

DRUGS (16)
  1. NUCALA [Suspect]
     Active Substance: MEPOLIZUMAB
     Route: 064
     Dates: start: 20170112
  2. FLIXOTIDE [Suspect]
     Active Substance: FLUTICASONE PROPIONATE
     Route: 064
  3. LEVOCETIRIZINE [Suspect]
     Active Substance: LEVOCETIRIZINE
     Route: 064
  4. RELVAR ELLIPTA [Suspect]
     Active Substance: FLUTICASONE FUROATE\VILANTEROL TRIFENATATE
     Route: 064
  5. PANTOPRAZOLE SODIUM SESQUIHYDRATE [Suspect]
     Active Substance: PANTOPRAZOLE SODIUM
     Route: 064
  6. D-CURE [Suspect]
     Active Substance: CHOLECALCIFEROL
     Route: 064
  7. XANTHIUM (THEOPHYLLINE) [Suspect]
     Active Substance: THEOPHYLLINE
     Route: 064
  8. VILANTEROL TRIFENATATE [Suspect]
     Active Substance: VILANTEROL TRIFENATATE
     Route: 064
  9. SERETIDE [Suspect]
     Active Substance: FLUTICASONE PROPIONATE\SALMETEROL XINAFOATE
     Route: 064
  10. VENTOLIN [Suspect]
     Active Substance: ALBUTEROL SULFATE
     Route: 064
  11. SIPRALEXA [Suspect]
     Active Substance: ESCITALOPRAM OXALATE
     Route: 064
  12. FLUTICASONE FUROATE [Suspect]
     Active Substance: FLUTICASONE FUROATE
     Dosage: INHALATION POWDER
     Route: 064
  13. PANTOMED (PANTOPRAZOLE SODIUM SESQUIHYDRATE) [Suspect]
     Active Substance: PANTOPRAZOLE SODIUM
     Route: 064
  14. THEOPHYLLINE [Suspect]
     Active Substance: THEOPHYLLINE ANHYDROUS
     Route: 064
  15. XYZALL [Suspect]
     Active Substance: LEVOCETIRIZINE DIHYDROCHLORIDE
     Route: 064
  16. AVAMYS [Suspect]
     Active Substance: FLUTICASONE FUROATE
     Dosage: NASAL SPRAY
     Route: 064

REACTIONS (4)
  - Foetal exposure during pregnancy [Fatal]
  - Foetal malformation [Fatal]
  - Trisomy 18 [Fatal]
  - Maternal drugs affecting foetus [None]

NARRATIVE: CASE EVENT DATE: 20170808
